FAERS Safety Report 6249798-0 (Version None)
Quarter: 2009Q2

REPORT INFORMATION
  Report Type: 
  Country: None (occurrence: None)
  Receive Date: 20090629
  Receipt Date: 20090624
  Transmission Date: 20091009
  Serious: Yes (Other)
  Sender: FDA-Public Use
  Company Number: PHHY2009CH25728

PATIENT
  Sex: Female

DRUGS (1)
  1. ESTALIS SEQUI [Suspect]
     Indication: MENOPAUSAL DISORDER
     Dosage: 1 DF, QW2
     Route: 062

REACTIONS (2)
  - SUDDEN HEARING LOSS [None]
  - TINNITUS [None]
